FAERS Safety Report 9260526 (Version 2)
Quarter: 2014Q1

REPORT INFORMATION
  Report Type: Report from Study
  Country: JP (occurrence: JP)
  Receive Date: 20130429
  Receipt Date: 20140317
  Transmission Date: 20141002
  Serious: Yes (Hospitalization)
  Sender: FDA-Public Use
  Company Number: JP-VERTEX PHARMACEUTICALS INC-2013-005426

PATIENT
  Age: 61 Year
  Sex: Male

DRUGS (9)
  1. VX-950 (TELAPREVIR) [Suspect]
     Indication: CHRONIC HEPATITIS C
     Dosage: 2250 MG, QD
     Route: 048
     Dates: start: 20120725, end: 20120814
  2. VX-950 (TELAPREVIR) [Suspect]
     Dosage: 1500 MG, QD
     Route: 048
     Dates: start: 20120815
  3. PEGINTERFERON ALFA-2B [Suspect]
     Indication: CHRONIC HEPATITIS C
     Dosage: 1.5 ?G/KG, QW
     Route: 058
     Dates: start: 20120725
  4. RIBAVIRIN [Concomitant]
     Dosage: 800 MG, QD
     Route: 048
     Dates: start: 20120725, end: 20120814
  5. RIBAVIRIN [Concomitant]
     Dosage: 400 MG, QD
     Route: 048
     Dates: start: 20120815
  6. DIOVAN [Concomitant]
     Dosage: 80 MG, QD
     Route: 048
  7. CALBLOCK [Concomitant]
     Dosage: 16 MG, QD
     Route: 048
  8. ETIZOLAM [Concomitant]
     Dosage: 0.5 MG, QD
     Route: 048
  9. LENDORMIN [Concomitant]
     Dosage: 0.25 MG, QD
     Route: 048

REACTIONS (1)
  - Decreased appetite [Recovered/Resolved]
